FAERS Safety Report 8357669-9 (Version None)
Quarter: 2012Q2

REPORT INFORMATION
  Report Type: 
  Country: None (occurrence: None)
  Receive Date: 20120514
  Receipt Date: 20120430
  Transmission Date: 20120825
  Serious: Yes (Death)
  Sender: FDA-Public Use
  Company Number: GB-TEVA-250599ISR

PATIENT
  Age: 63 Year
  Sex: Female

DRUGS (9)
  1. CHONDROITIN [Concomitant]
  2. FELODIPINE [Concomitant]
     Indication: HYPERTENSION
     Dosage: 10 MILLIGRAM;
     Dates: start: 20050929
  3. ACETAMINOPHEN [Concomitant]
     Indication: OSTEOARTHRITIS
     Dosage: 3 GRAM;
     Dates: start: 20090731
  4. MILK THISTLE SEED EXTRACT [Concomitant]
     Dosage: 8582 MILLIGRAM;
  5. GLUCOSAMINE [Concomitant]
     Dosage: 1500 MILLIGRAM;
  6. PIROXICAM [Suspect]
     Indication: OSTEOPOROSIS
     Dosage: 200 MILLIGRAM;
     Dates: start: 20050428, end: 20100615
  7. CRESTOR [Concomitant]
     Dosage: 20 MILLIGRAM;
  8. DULCOLAX [Concomitant]
  9. GARLIC [Concomitant]

REACTIONS (2)
  - ARRHYTHMIA [None]
  - CARDIAC ARREST [None]
